FAERS Safety Report 5231103-X (Version None)
Quarter: 2007Q1

REPORT INFORMATION
  Report Type: 
  Country: None (occurrence: None)
  Receive Date: 20070206
  Receipt Date: 20070202
  Transmission Date: 20070707
  Serious: Yes (Hospitalization)
  Sender: FDA-Public Use
  Company Number: BE-GLAXOSMITHKLINE-B0456890A

PATIENT
  Age: 5 Year
  Sex: Male

DRUGS (2)
  1. CEFUROXIME [Suspect]
     Indication: PNEUMONIA
  2. PERDOLAN [Concomitant]

REACTIONS (2)
  - PHARMACEUTICAL PRODUCT COMPLAINT [None]
  - SEPSIS [None]
